FAERS Safety Report 14158695 (Version 1)
Quarter: 2017Q4

REPORT INFORMATION
  Report Type: Report from Study
  Country: US (occurrence: US)
  Receive Date: 20171103
  Receipt Date: 20171103
  Transmission Date: 20180321
  Serious: Yes (Death, Hospitalization, Other)
  Sender: FDA-Public Use
  Company Number: US-009507513-1710USA000416

PATIENT
  Age: 61 Year
  Sex: Male

DRUGS (2)
  1. KEYTRUDA [Suspect]
     Active Substance: PEMBROLIZUMAB
     Indication: LUNG NEOPLASM MALIGNANT
     Dosage: UNK, STRENGTH: 100 MG
     Route: 042
     Dates: start: 20170703, end: 20170712
  2. KEYTRUDA [Suspect]
     Active Substance: PEMBROLIZUMAB
     Dosage: 130 MG, UNK(ONE DOSE)
     Route: 042
     Dates: start: 20170712, end: 20170712

REACTIONS (2)
  - Respiratory distress [Unknown]
  - Respiratory failure [Fatal]

NARRATIVE: CASE EVENT DATE: 201707
